FAERS Safety Report 25761214 (Version 2)
Quarter: 2025Q4

REPORT INFORMATION
  Report Type: Report from Study
  Country: US (occurrence: US)
  Receive Date: 20250904
  Receipt Date: 20251009
  Transmission Date: 20260117
  Serious: Yes (Hospitalization)
  Sender: CALLIDITAS THERAPEUTICS AB
  Company Number: US-Calliditas-2025CAL02683

PATIENT
  Age: 76 Year
  Sex: Male

DRUGS (21)
  1. TARPEYO [Suspect]
     Active Substance: BUDESONIDE
     Indication: IgA nephropathy
     Route: 048
     Dates: start: 20250628
  2. ALFUZOSIN [Concomitant]
     Active Substance: ALFUZOSIN
  3. CELLCEPT [Concomitant]
     Active Substance: MYCOPHENOLATE MOFETIL
  4. DONEPEZIL [Concomitant]
     Active Substance: DONEPEZIL
  5. FAMOTIDINE [Concomitant]
     Active Substance: FAMOTIDINE
  6. FERROUS SULFATE [Concomitant]
     Active Substance: FERROUS SULFATE
  7. HYDRALAZINE [Concomitant]
     Active Substance: HYDRALAZINE HYDROCHLORIDE
  8. ICOSAPENT ETHYL [Concomitant]
     Active Substance: ICOSAPENT ETHYL
  9. JARDIANCE [Concomitant]
     Active Substance: EMPAGLIFLOZIN
  10. OMEPRAZOLE [Concomitant]
     Active Substance: OMEPRAZOLE
  11. OXYBUTYNIN [Concomitant]
     Active Substance: OXYBUTYNIN
  12. PRAVASTATIN [Concomitant]
     Active Substance: PRAVASTATIN
  13. PREDNISONE [Concomitant]
     Active Substance: PREDNISONE
  14. TACROLIMUS [Concomitant]
     Active Substance: TACROLIMUS
  15. TAMSULOSIN [Concomitant]
     Active Substance: TAMSULOSIN
  16. VITAMIN B COMPLEX [Concomitant]
     Active Substance: CYANOCOBALAMIN\DEXPANTHENOL\NIACINAMIDE\PYRIDOXINE HYDROCHLORIDE\RIBOFLAVIN 5^-PHOSPHATE SODIUM\THIA
  17. ASCORBIC ACID [Concomitant]
     Active Substance: ASCORBIC ACID
  18. FOLIC ACID [Concomitant]
     Active Substance: FOLIC ACID
  19. VITAMIN B1 [Concomitant]
     Active Substance: THIAMINE HYDROCHLORIDE
  20. VITAMIN B12 [Concomitant]
     Active Substance: CYANOCOBALAMIN
  21. VITAMIN D2 [Concomitant]
     Active Substance: ERGOCALCIFEROL

REACTIONS (5)
  - Dyspnoea [Unknown]
  - Malaise [Unknown]
  - Palpitations [Unknown]
  - Blood pressure increased [Unknown]
  - Asthenia [Unknown]
